FAERS Safety Report 8607864-6 (Version None)
Quarter: 2012Q3

REPORT INFORMATION
  Report Type: 
  Country: None (occurrence: None)
  Receive Date: 20120821
  Receipt Date: 20120817
  Transmission Date: 20120928
  Serious: Yes (Other)
  Sender: FDA-Public Use
  Company Number: PHFR2012GB004564

PATIENT
  Sex: Female

DRUGS (3)
  1. VALPROATE SODIUM [Concomitant]
  2. TEGRETOL [Suspect]
     Indication: EPILEPSY
     Dates: start: 19820101
  3. KEPPRA [Concomitant]

REACTIONS (2)
  - PAIN IN EXTREMITY [None]
  - NEURALGIA [None]
